FAERS Safety Report 5835968-X (Version None)
Quarter: 2008Q3

REPORT INFORMATION
  Report Type: 
  Country: None (occurrence: None)
  Receive Date: 20080806
  Receipt Date: 20080725
  Transmission Date: 20090109
  Serious: Yes (Hospitalization, Other)
  Sender: FDA-Public Use
  Company Number: CA-PFIZER INC-2008032670

PATIENT
  Age: 63 Year
  Sex: Female
  Weight: 89.8 kg

DRUGS (7)
  1. CHANTIX [Suspect]
     Indication: SMOKING CESSATION THERAPY
     Route: 048
     Dates: start: 20070517, end: 20070521
  2. AVAPRO [Concomitant]
  3. CITALOPRAM HYDROBROMIDE [Concomitant]
  4. ACETYLSALICYLIC ACID SRT [Concomitant]
  5. PARIET [Concomitant]
  6. PROVERA [Concomitant]
  7. CES [Concomitant]

REACTIONS (3)
  - AMNESIA [None]
  - CONVULSION [None]
  - URINARY INCONTINENCE [None]
